FAERS Safety Report 6040736-2 (Version None)
Quarter: 2009Q1

REPORT INFORMATION
  Report Type: 
  Country: None (occurrence: None)
  Receive Date: 20090116
  Receipt Date: 20080514
  Transmission Date: 20090719
  Serious: No
  Sender: FDA-Public Use
  Company Number: US-BRISTOL-MYERS SQUIBB COMPANY-14191100

PATIENT
  Age: 45 Year
  Sex: Female
  Weight: 88 kg

DRUGS (2)
  1. ABILIFY [Suspect]
     Dates: start: 20080322
  2. TRILEPTAL [Concomitant]

REACTIONS (3)
  - ABNORMAL DREAMS [None]
  - BLOOD GLUCOSE INCREASED [None]
  - INSOMNIA [None]
